FAERS Safety Report 20992341 (Version 1)
Quarter: 2022Q2

REPORT INFORMATION
  Report Type: Spontaneous
  Country: US (occurrence: US)
  Receive Date: 20220622
  Receipt Date: 20220622
  Transmission Date: 20220720
  Serious: No
  Sender: FDA-Public Use
  Company Number: US-PFIZER INC-PV202200003712

PATIENT
  Age: 60 Year
  Sex: Female

DRUGS (1)
  1. EUCRISA [Suspect]
     Active Substance: CRISABOROLE
     Indication: Dermatitis contact
     Dosage: UNK, 2X/DAY (APPLY TO AFFECTED AREA;)
     Route: 061

REACTIONS (3)
  - Off label use [Unknown]
  - Eye irritation [Unknown]
  - Eye pruritus [Unknown]
